FAERS Safety Report 4552805-4 (Version None)
Quarter: 2005Q1

REPORT INFORMATION
  Report Type: 
  Country: None (occurrence: None)
  Receive Date: 20050112
  Receipt Date: 20041229
  Transmission Date: 20050727
  Serious: Yes (Hospitalization, Other)
  Sender: FDA-Public Use
  Company Number: USA041287126

PATIENT
  Age: 46 Year
  Sex: Male
  Weight: 141 kg

DRUGS (9)
  1. HUMULIN-HUMAN INSULIN (REDNA) :30% REGULAR, 70% NPH [Suspect]
     Dosage: 120 U DAY
     Dates: start: 19940101
  2. AVANDIA [Concomitant]
  3. GLYBURIDE [Concomitant]
  4. MAGNESIUM [Concomitant]
  5. LANOXIN (DIGOXIN STREULI) [Concomitant]
  6. COREG [Concomitant]
  7. TEGRETOL (CARBAMAZEPINE RIVOPHARM) [Concomitant]
  8. GLUCOPHAGE [Concomitant]
  9. ZESTRIL [Concomitant]

REACTIONS (6)
  - CARDIAC DISORDER [None]
  - GASTROINTESTINAL DISORDER [None]
  - HEART TRANSPLANT [None]
  - NAUSEA [None]
  - PROSTATIC DISORDER [None]
  - WEIGHT DECREASED [None]
